FAERS Safety Report 20077481 (Version 1)
Quarter: 2021Q4

REPORT INFORMATION
  Report Type: Spontaneous
  Country: FR (occurrence: FR)
  Receive Date: 20211116
  Receipt Date: 20211116
  Transmission Date: 20220303
  Serious: Yes (Hospitalization)
  Sender: FDA-Public Use
  Company Number: None

PATIENT
  Age: 85 Year
  Sex: Male

DRUGS (3)
  1. GABAPENTIN [Suspect]
     Active Substance: GABAPENTIN
     Indication: Product used for unknown indication
     Dosage: 300 MILLIGRAM, Q3D, 3X/J
     Route: 048
     Dates: start: 20210212, end: 20210403
  2. GABAPENTIN [Suspect]
     Active Substance: GABAPENTIN
     Dosage: 600 MILLIGRAM, Q3D, 3X/J
     Route: 048
     Dates: start: 20210211, end: 20210212
  3. GABAPENTIN [Suspect]
     Active Substance: GABAPENTIN
     Dosage: UNK

REACTIONS (3)
  - Withdrawal syndrome [Recovering/Resolving]
  - Confusional state [Recovering/Resolving]
  - Myoclonus [Recovered/Resolved]

NARRATIVE: CASE EVENT DATE: 20210412
